FAERS Safety Report 24526665 (Version 1)
Quarter: 2024Q4

REPORT INFORMATION
  Report Type: Report from Study
  Country: US (occurrence: US)
  Receive Date: 20241021
  Receipt Date: 20241021
  Transmission Date: 20250114
  Serious: No
  Sender: ROCHE
  Company Number: US-ROCHE-2730617

PATIENT
  Age: 66 Year
  Sex: Female

DRUGS (2)
  1. ZELBORAF [Suspect]
     Active Substance: VEMURAFENIB
     Indication: Colon cancer
     Route: 048
     Dates: start: 20180613
  2. ZELBORAF [Suspect]
     Active Substance: VEMURAFENIB
     Indication: Colorectal cancer metastatic
     Dosage: 2 TABLETS(480MG) BY MOUTH EVERY 12HOURS
     Route: 048

REACTIONS (1)
  - Off label use [Unknown]

NARRATIVE: CASE EVENT DATE: 20180613
